FAERS Safety Report 25403469 (Version 1)
Quarter: 2025Q2

REPORT INFORMATION
  Report Type: Spontaneous
  Country: JP (occurrence: JP)
  Receive Date: 20250605
  Receipt Date: 20250605
  Transmission Date: 20250717
  Serious: Yes (Life-Threatening, Hospitalization, Other)
  Sender: BRISTOL-MYERS SQUIBB COMPANY
  Company Number: JP-BRISTOL-MYERS SQUIBB COMPANY-2025-079107

PATIENT
  Age: 7 Decade
  Sex: Male

DRUGS (3)
  1. YERVOY [Suspect]
     Active Substance: IPILIMUMAB
     Indication: Metastatic renal cell carcinoma
     Route: 041
  2. OPDIVO [Suspect]
     Active Substance: NIVOLUMAB
     Indication: Metastatic renal cell carcinoma
     Route: 041
  3. CABOZANTINIB [Suspect]
     Active Substance: CABOZANTINIB
     Indication: Metastatic renal cell carcinoma
     Route: 048

REACTIONS (7)
  - Cardio-respiratory arrest [Unknown]
  - Dehydration [Unknown]
  - Urinary tract infection [Unknown]
  - Immune-mediated adrenal insufficiency [Unknown]
  - Adrenocortical insufficiency acute [Unknown]
  - Disorientation [Unknown]
  - Malignant neoplasm progression [Unknown]
